FAERS Safety Report 6761459-8 (Version None)
Quarter: 2010Q2

REPORT INFORMATION
  Report Type: 
  Country: None (occurrence: None)
  Receive Date: 20100608
  Receipt Date: 20100528
  Transmission Date: 20101027
  Serious: Yes (Hospitalization)
  Sender: FDA-Public Use
  Company Number: US-ROCHE-707579

PATIENT
  Sex: Male
  Weight: 87 kg

DRUGS (20)
  1. BEVACIZUMAB [Suspect]
     Route: 042
     Dates: start: 20090402, end: 20100511
  2. ERLOTINIB [Suspect]
     Route: 048
     Dates: start: 20090402, end: 20090514
  3. ERLOTINIB [Suspect]
     Route: 048
     Dates: start: 20090514, end: 20100527
  4. IMDUR [Concomitant]
  5. ASPIRIN [Concomitant]
  6. NITROGLYCERIN [Concomitant]
  7. ULTRAM [Concomitant]
  8. COMBIVENT [Concomitant]
  9. ALBUTEROL [Concomitant]
  10. NEURONTIN [Concomitant]
  11. SPIRIVA [Concomitant]
  12. PROPRANOLOL [Concomitant]
  13. MINOCYCLINE HCL [Concomitant]
  14. LISINOPRIL [Concomitant]
     Dosage: DRUG: LISIOPRIL
  15. HEPSERA [Concomitant]
  16. PROTONIX [Concomitant]
  17. PEPCID [Concomitant]
  18. XANAX [Concomitant]
  19. UREA CREAM [Concomitant]
  20. ELAVIL [Concomitant]

REACTIONS (3)
  - ATELECTASIS [None]
  - HYPOTENSION [None]
  - TACHYCARDIA [None]
